FAERS Safety Report 21514737 (Version 3)
Quarter: 2024Q3

REPORT INFORMATION
  Report Type: Report from Study
  Country: DE (occurrence: DE)
  Receive Date: 20221027
  Receipt Date: 20240711
  Transmission Date: 20241017
  Serious: No
  Sender: TAKEDA
  Company Number: DE-TAKEDA-2022TUS078207

PATIENT
  Age: 16 Year
  Sex: Female
  Weight: 63 kg

DRUGS (12)
  1. LANADELUMAB [Suspect]
     Active Substance: LANADELUMAB
     Indication: Hereditary angioedema
     Dosage: 300 MILLIGRAM, Q2WEEKS
     Route: 065
     Dates: start: 20210618
  2. Maxim [Concomitant]
     Indication: Endometriosis
     Dosage: 1 DOSAGE FORM
     Route: 048
     Dates: start: 20200901
  3. SUMATRIPTAN [Concomitant]
     Active Substance: SUMATRIPTAN
     Indication: Migraine
     Dosage: 50 MILLIGRAM
     Route: 048
     Dates: start: 20201001
  4. DESLORATADINE [Concomitant]
     Active Substance: DESLORATADINE
     Indication: Cold urticaria
     Dosage: 10 MILLIGRAM
     Route: 048
     Dates: start: 20211210
  5. NALOXONE HYDROCHLORIDE\TILIDINE HYDROCHLORIDE [Concomitant]
     Active Substance: NALOXONE HYDROCHLORIDE\TILIDINE HYDROCHLORIDE
     Indication: Endometriosis
     Dosage: 1 DOSAGE FORM
     Route: 048
     Dates: start: 20220518, end: 20220523
  6. LYRICA [Concomitant]
     Active Substance: PREGABALIN
     Indication: Hemiparesis
     Dosage: 150 MILLIGRAM
     Route: 048
     Dates: start: 20220817, end: 20220817
  7. LYRICA [Concomitant]
     Active Substance: PREGABALIN
     Indication: Hypoaesthesia
     Dosage: 300 MILLIGRAM
     Route: 048
     Dates: start: 20220731
  8. BUPROPION [Concomitant]
     Active Substance: BUPROPION
     Indication: Depression
     Dosage: 300 MILLIGRAM
     Route: 048
     Dates: start: 20220501
  9. PYLERA [Concomitant]
     Active Substance: BISMUTH SUBCITRATE POTASSIUM\METRONIDAZOLE\TETRACYCLINE HYDROCHLORIDE
     Indication: Helicobacter gastritis
     Dosage: 9 DOSAGE FORM
     Route: 048
     Dates: start: 20230610, end: 20230620
  10. PANTOPRAZOLE SODIUM [Concomitant]
     Active Substance: PANTOPRAZOLE SODIUM
     Indication: Helicobacter gastritis
     Dosage: 40 MILLIGRAM
     Route: 048
     Dates: start: 20230610, end: 20230620
  11. BUPRENORPHINE [Concomitant]
     Active Substance: BUPRENORPHINE
     Indication: Neck pain
     Dosage: 5 UNK
     Route: 062
     Dates: start: 20230701
  12. BUPRENORPHINE [Concomitant]
     Active Substance: BUPRENORPHINE
     Indication: Arthralgia

REACTIONS (1)
  - Haemorrhagic diathesis [Not Recovered/Not Resolved]

NARRATIVE: CASE EVENT DATE: 20220411
